FAERS Safety Report 19952506 (Version 3)
Quarter: 2021Q4

REPORT INFORMATION
  Report Type: Report from Study
  Country: US (occurrence: US)
  Receive Date: 20211014
  Receipt Date: 20211026
  Transmission Date: 20220303
  Serious: Yes (Death, Hospitalization, Other)
  Sender: FDA-Public Use
  Company Number: US-GLAXOSMITHKLINE-US2021AMR211003

PATIENT
  Age: 75 Year
  Sex: Female

DRUGS (1)
  1. NIRAPARIB [Suspect]
     Active Substance: NIRAPARIB
     Indication: Ovarian cancer
     Dosage: 200 MG, QD, PM AFTER DINNER
     Route: 048
     Dates: start: 20210916

REACTIONS (11)
  - Death [Fatal]
  - Platelet count decreased [Not Recovered/Not Resolved]
  - White blood cell count decreased [Not Recovered/Not Resolved]
  - Myelosuppression [Unknown]
  - Full blood count abnormal [Unknown]
  - Bite [Not Recovered/Not Resolved]
  - Lip haemorrhage [Unknown]
  - Seizure [Unknown]
  - Haemoglobin decreased [Unknown]
  - Glycosylated haemoglobin decreased [Unknown]
  - Confusional state [Unknown]

NARRATIVE: CASE EVENT DATE: 20211019
